FAERS Safety Report 4691466-0 (Version None)
Quarter: 2005Q2

REPORT INFORMATION
  Report Type: 
  Country: None (occurrence: None)
  Receive Date: 20050613
  Receipt Date: 20050214
  Transmission Date: 20051028
  Serious: Yes (Other)
  Sender: FDA-Public Use
  Company Number: S05-USA-00781-01

PATIENT
  Age: 67 Year
  Sex: Male
  Weight: 89.8122 kg

DRUGS (4)
  1. LEXAPRO [Suspect]
     Indication: ANXIETY
     Dosage: 10 MG QD PO
     Route: 048
     Dates: start: 20050201, end: 20050301
  2. INDERAL LA [Suspect]
     Indication: HYPERTENSION
     Dosage: 80 MG QD
  3. CAPTOPRIL [Concomitant]
  4. HYDROCHLOROTHIAZIDE [Concomitant]

REACTIONS (1)
  - BRADYCARDIA [None]
